FAERS Safety Report 6580488-0 (Version None)
Quarter: 2010Q1

REPORT INFORMATION
  Report Type: 
  Country: None (occurrence: None)
  Receive Date: 20100203
  Receipt Date: 20100118
  Transmission Date: 20100710
  Serious: Yes (Death)
  Sender: FDA-Public Use
  Company Number: B0627002A

PATIENT
  Age: 25 Year
  Sex: Female

DRUGS (6)
  1. BUPROPION HCL [Suspect]
     Dosage: ORAL
     Route: 048
  2. ETHANOL (FORMULATION UNKNOWN) (ALCOHOL) [Suspect]
     Dosage: ORAL
     Route: 048
  3. BENZODIAZEPINES (FORMULATION UNKNOWN) (BENZODIAZEPINES) [Suspect]
     Dosage: ORAL
     Route: 048
  4. OLANZAPINE [Suspect]
     Dosage: ORAL
     Route: 048
  5. SERTRALINE (FORMULATION UNKNOWN) (SERTRALINE) [Suspect]
     Dosage: ORAL
     Route: 048
  6. HYDROCODNE + PARACETAMOL (FORMULATION UNKNOWN) (HYDROCODONE + ACETAMIN [Suspect]
     Dosage: ORAL
     Route: 048

REACTIONS (2)
  - CARDIO-RESPIRATORY ARREST [None]
  - DRUG WITHDRAWAL SYNDROME [None]
